FAERS Safety Report 5453105-0 (Version None)
Quarter: 2007Q3

REPORT INFORMATION
  Report Type: 
  Country: None (occurrence: None)
  Receive Date: 20070914
  Receipt Date: 20070904
  Transmission Date: 20080115
  Serious: Yes (Other)
  Sender: FDA-Public Use
  Company Number: CN-PFIZER INC-2007069708

PATIENT
  Age: 62 Year
  Sex: Female

DRUGS (4)
  1. ZOLOFT [Suspect]
     Indication: DEPRESSION
     Route: 048
     Dates: start: 20070607, end: 20070608
  2. METFORMIN HCL [Concomitant]
     Route: 048
     Dates: start: 20070529, end: 20070609
  3. PIRACETAM [Concomitant]
     Route: 042
     Dates: start: 20070607, end: 20070611
  4. ALL OTHER THERAPEUTIC PRODUCTS [Concomitant]

REACTIONS (3)
  - ADVERSE DRUG REACTION [None]
  - LETHARGY [None]
  - SOMNOLENCE [None]
